FAERS Safety Report 7291641-5 (Version None)
Quarter: 2011Q1

REPORT INFORMATION
  Report Type: 
  Country: None (occurrence: None)
  Receive Date: 20110209
  Receipt Date: 20110209
  Transmission Date: 20110831
  Serious: Yes (Life-Threatening, Hospitalization)
  Sender: FDA-Public Use
  Company Number: None

PATIENT
  Age: 42 Year
  Sex: Female
  Weight: 98.6 kg

DRUGS (1)
  1. NUVARING [Suspect]
     Indication: CONTRACEPTION
     Dosage: INSERT ONE RING Q 30 DAYS VAG
     Route: 067

REACTIONS (2)
  - VENOUS THROMBOSIS LIMB [None]
  - PULMONARY EMBOLISM [None]
